FAERS Safety Report 9915269 (Version 1)
Quarter: 2014Q1

REPORT INFORMATION
  Report Type: Report from Study
  Country: US (occurrence: US)
  Receive Date: 20140221
  Receipt Date: 20140221
  Transmission Date: 20141002
  Serious: Yes (Other)
  Sender: FDA-Public Use
  Company Number: US-ROCHE-1302587

PATIENT
  Sex: Female

DRUGS (2)
  1. LUCENTIS [Suspect]
     Indication: MACULAR DEGENERATION
     Dosage: MOST RECENT DOCUMENTED DOSE: 22/APR/2013.
     Route: 065
  2. AVASTIN [Suspect]
     Indication: MACULAR DEGENERATION
     Dosage: MOST RECENT DOCUMENTED DOSE: 16/OCT/2009.
     Route: 065

REACTIONS (11)
  - Retinal oedema [Unknown]
  - Age-related macular degeneration [Unknown]
  - Ocular hypertension [Unknown]
  - Vitreous detachment [Unknown]
  - Cataract nuclear [Unknown]
  - Visual acuity reduced [Unknown]
  - Ophthalmological examination abnormal [Unknown]
  - Macular degeneration [Unknown]
  - Retinal disorder [Unknown]
  - Retinal scar [Unknown]
  - Cataract subcapsular [Unknown]
